FAERS Safety Report 14665063 (Version 1)
Quarter: 2018Q1

REPORT INFORMATION
  Report Type: Spontaneous
  Country: US (occurrence: US)
  Receive Date: 20180319
  Receipt Date: 20180319
  Transmission Date: 20180509
  Serious: Yes (Disabling)
  Sender: FDA-Public Use
  Company Number: None

PATIENT
  Age: 61 Year
  Sex: Male
  Weight: 90 kg

DRUGS (3)
  1. AMLODIPINE [Concomitant]
     Active Substance: AMLODIPINE BESYLATE
  2. CLOPIDOGREL [Concomitant]
     Active Substance: CLOPIDOGREL BISULFATE
  3. REPATHA [Suspect]
     Active Substance: EVOLOCUMAB
     Indication: BLOOD CHOLESTEROL INCREASED
     Dosage: QUANTITY:1 INJECTION(S);OTHER FREQUENCY:EVERY 14 DAYS;OTHER ROUTE:INJECTION?
     Dates: start: 20170124, end: 20180220

REACTIONS (11)
  - Oropharyngeal pain [None]
  - Pulmonary congestion [None]
  - Cough [None]
  - Nasopharyngitis [None]
  - Dysphonia [None]
  - Rhinorrhoea [None]
  - Dysphagia [None]
  - Speech disorder [None]
  - Dyspnoea [None]
  - Spinal fusion surgery [None]
  - Influenza like illness [None]

NARRATIVE: CASE EVENT DATE: 20180220
